FAERS Safety Report 6008117 (Version 2)
Quarter: 2017Q4

REPORT INFORMATION
  Report Type: Spontaneous
  Country: GR (occurrence: GR)
  Receive Date: 20060320
  Receipt Date: 20171220
  Transmission Date: 20180321
  Serious: Yes (Hospitalization)
  Sender: FDA-Public Use
  Company Number: GR-ROCHE-439313

PATIENT
  Age: 38 Year
  Sex: Female

DRUGS (2)
  1. RIBAVIRIN. [Suspect]
     Active Substance: RIBAVIRIN
     Indication: CHRONIC HEPATITIS C
     Route: 065
  2. INTERFERON ALFA-2B [Suspect]
     Active Substance: INTERFERON ALFA-2B
     Indication: CHRONIC HEPATITIS C
     Route: 065

REACTIONS (7)
  - Headache [Recovered/Resolved]
  - Retinal detachment [Unknown]
  - Vogt-Koyanagi-Harada syndrome [Recovering/Resolving]
  - Tinnitus [Recovered/Resolved]
  - Visual acuity reduced [Recovered/Resolved]
  - Meningism [Recovered/Resolved]
  - Papilloedema [Unknown]
